FAERS Safety Report 10186256 (Version 1)
Quarter: 2014Q2

REPORT INFORMATION
  Report Type: Spontaneous
  Country: JP (occurrence: JP)
  Receive Date: 20140521
  Receipt Date: 20140521
  Transmission Date: 20141212
  Serious: Yes (Life-Threatening, Hospitalization, Other)
  Sender: FDA-Public Use
  Company Number: JP-WATSON-2014-10617

PATIENT
  Age: 46 Year
  Sex: Male

DRUGS (6)
  1. CLOZAPINE (UNKNOWN) [Suspect]
     Indication: PSYCHOTIC BEHAVIOUR
     Dosage: GRADUALLY INCREASED TO 275 MG/DAY, 37 DAYS AFTER INITIATION
     Route: 065
  2. RISPERIDONE (UNKNOWN) [Suspect]
     Indication: PSYCHOTIC BEHAVIOUR
     Dosage: MAXIMUM DOSE 8 MG/DAY
     Route: 065
  3. OLANZAPINE (UNKNOWN) [Suspect]
     Indication: PSYCHOTIC BEHAVIOUR
     Dosage: MAXIMUM DOSE 30 MG/DAY
     Route: 065
  4. FLUPHENAZINE [Suspect]
     Indication: PSYCHOTIC BEHAVIOUR
     Dosage: MAXIMUM DOSE 10 MG/DAY
     Route: 065
  5. LITHIUM CARBONATE [Concomitant]
     Indication: PRODUCT USED FOR UNKNOWN INDICATION
     Dosage: 600 MG, DAILY
     Route: 065
  6. SENNOSIDE                          /00571901/ [Concomitant]
     Indication: PRODUCT USED FOR UNKNOWN INDICATION
     Dosage: 12-24 MG/DAILY
     Route: 065

REACTIONS (4)
  - Large intestine perforation [Recovered/Resolved]
  - Appendicitis [Recovered/Resolved]
  - Peritonitis [Recovered/Resolved]
  - Constipation [Recovered/Resolved]
